FAERS Safety Report 8138609-4 (Version None)
Quarter: 2012Q1

REPORT INFORMATION
  Report Type: 
  Country: None (occurrence: None)
  Receive Date: 20120213
  Receipt Date: 20120124
  Transmission Date: 20120608
  Serious: Yes (Life-Threatening, Hospitalization)
  Sender: FDA-Public Use
  Company Number: GGEL20120100070

PATIENT
  Age: 27 Year
  Sex: Male
  Weight: 79 kg

DRUGS (7)
  1. NAPROXEN [Concomitant]
  2. GABAPENTIN [Concomitant]
  3. VITAMIN B SUBSTANCES (VITAMIN B SUBSTANCES) (VITAMIN B SUBSTANCES) [Concomitant]
  4. TOPIRAMATE [Suspect]
     Indication: PRODUCT USED FOR UNKNOWN INDICATION
     Dates: start: 20120116
  5. TOPIRAMATE [Suspect]
     Indication: PRODUCT USED FOR UNKNOWN INDICATION
     Dates: start: 20120104, end: 20120105
  6. TOPIRAMATE [Suspect]
     Indication: PRODUCT USED FOR UNKNOWN INDICATION
     Dates: start: 20111212, end: 20111213
  7. OMEPRAZOLE [Concomitant]

REACTIONS (4)
  - SUICIDE ATTEMPT [None]
  - APPARENT LIFE THREATENING EVENT [None]
  - AGGRESSION [None]
  - OVERDOSE [None]
